FAERS Safety Report 6632307-1 (Version None)
Quarter: 2010Q1

REPORT INFORMATION
  Report Type: 
  Country: None (occurrence: None)
  Receive Date: 20100312
  Receipt Date: 20100305
  Transmission Date: 20100710
  Serious: Yes (Hospitalization)
  Sender: FDA-Public Use
  Company Number: B0597145A

PATIENT
  Age: 62 Year
  Sex: Female

DRUGS (2)
  1. TYKERB [Suspect]
     Indication: BREAST CANCER
     Dosage: 1250MG UNKNOWN
     Route: 048
     Dates: start: 20090801, end: 20091002
  2. XELODA [Suspect]
     Indication: DRUG USE FOR UNKNOWN INDICATION
     Route: 048
     Dates: start: 20090801, end: 20091002

REACTIONS (2)
  - ERYTHEMA [None]
  - OEDEMA [None]
